FAERS Safety Report 6915960-4 (Version None)
Quarter: 2010Q3

REPORT INFORMATION
  Report Type: 
  Country: None (occurrence: None)
  Receive Date: 20100809
  Receipt Date: 20100809
  Transmission Date: 20110219
  Serious: Yes (Other)
  Sender: FDA-Public Use
  Company Number: None

PATIENT
  Sex: Female
  Weight: 80.7403 kg

DRUGS (7)
  1. LAMICTAL [Suspect]
     Indication: MIGRAINE
     Dosage: 50MG WEEK 1-2; AM PO ; 50 MG WEEK 3: AM + PM PO
     Route: 048
     Dates: start: 20100719, end: 20100805
  2. SYNTHROID [Concomitant]
  3. EFFEXOR [Concomitant]
  4. NEXIUM [Concomitant]
  5. ULTRAM [Concomitant]
  6. VICODIN [Concomitant]
  7. REGLAN [Concomitant]

REACTIONS (14)
  - ABNORMAL BEHAVIOUR [None]
  - AFFECTIVE DISORDER [None]
  - COORDINATION ABNORMAL [None]
  - DEPRESSION [None]
  - DIZZINESS [None]
  - DRUG HYPERSENSITIVITY [None]
  - FAECES PALE [None]
  - FATIGUE [None]
  - HEADACHE [None]
  - IRRITABILITY [None]
  - MENTAL DISORDER [None]
  - NAUSEA [None]
  - SUICIDAL IDEATION [None]
  - VULVOVAGINAL PRURITUS [None]
